FAERS Safety Report 23029006 (Version 2)
Quarter: 2023Q4

REPORT INFORMATION
  Report Type: Report from Study
  Country: US (occurrence: US)
  Receive Date: 20231004
  Receipt Date: 20231025
  Transmission Date: 20240109
  Serious: Yes (Other)
  Sender: FDA-Public Use
  Company Number: US-OTSUKA-2023_025642

PATIENT
  Age: 21 Year
  Sex: Male

DRUGS (4)
  1. ABILIFY [Suspect]
     Active Substance: ARIPIPRAZOLE
     Indication: Bipolar disorder
     Dosage: 20 MG, QD
     Route: 048
     Dates: start: 20230905
  2. ABILIFY [Suspect]
     Active Substance: ARIPIPRAZOLE
     Indication: Depression suicidal
  3. ARIPIPRAZOLE [Suspect]
     Active Substance: ARIPIPRAZOLE
     Indication: Depression suicidal
     Dosage: UNK
     Route: 065
  4. ARIPIPRAZOLE [Suspect]
     Active Substance: ARIPIPRAZOLE
     Indication: Bipolar disorder

REACTIONS (5)
  - Mental impairment [Not Recovered/Not Resolved]
  - Suicidal ideation [Not Recovered/Not Resolved]
  - Therapy change [Unknown]
  - Product use in unapproved indication [Unknown]
  - Insurance issue [Unknown]

NARRATIVE: CASE EVENT DATE: 20230912
